FAERS Safety Report 23389015 (Version 1)
Quarter: 2024Q1

REPORT INFORMATION
  Report Type: Spontaneous
  Country: US (occurrence: US)
  Receive Date: 20240110
  Receipt Date: 20240110
  Transmission Date: 20240410
  Serious: Yes (Other)
  Sender: FDA-Public Use
  Company Number: US-PFIZER INC-202400001370

PATIENT
  Age: 85 Year
  Sex: Male

DRUGS (1)
  1. GENOTROPIN [Suspect]
     Active Substance: SOMATROPIN
     Dosage: UNK

REACTIONS (5)
  - Hepatic cancer [Unknown]
  - Weight decreased [Unknown]
  - Asthenia [Unknown]
  - Quality of life decreased [Unknown]
  - General physical health deterioration [Unknown]
